FAERS Safety Report 21684216 (Version 1)
Quarter: 2022Q4

REPORT INFORMATION
  Report Type: Spontaneous
  Country: US (occurrence: US)
  Receive Date: 20221205
  Receipt Date: 20221205
  Transmission Date: 20230112
  Serious: No
  Sender: FDA-Public Use
  Company Number: US-PERRIGO-22US002986

PATIENT
  Age: 39 Year
  Sex: Male
  Weight: 79.365 kg

DRUGS (3)
  1. GUAIFENESIN [Suspect]
     Active Substance: GUAIFENESIN
     Indication: Cough
     Dosage: 600 MG, BID
     Route: 048
     Dates: start: 20220131, end: 20220216
  2. GUAIFENESIN [Suspect]
     Active Substance: GUAIFENESIN
     Indication: Increased upper airway secretion
  3. IBUPROFEN [Concomitant]
     Active Substance: IBUPROFEN
     Indication: Arthralgia
     Dosage: UNK
     Route: 065
     Dates: start: 20220207

REACTIONS (2)
  - Drug ineffective [Unknown]
  - Incorrect product administration duration [Recovered/Resolved]

NARRATIVE: CASE EVENT DATE: 20220131
